FAERS Safety Report 21497364 (Version 1)
Quarter: 2022Q4

REPORT INFORMATION
  Report Type: Spontaneous
  Country: US (occurrence: None)
  Receive Date: 20221021
  Receipt Date: 20221021
  Transmission Date: 20230112
  Serious: Yes (Death)
  Sender: FDA-Public Use
  Company Number: None

PATIENT
  Age: 66 Year
  Sex: Female

DRUGS (1)
  1. XALKORI [Suspect]
     Active Substance: CRIZOTINIB
     Dosage: 250MG DAILY ORAL?
     Route: 048
     Dates: start: 202202, end: 20221018

REACTIONS (1)
  - Death [None]

NARRATIVE: CASE EVENT DATE: 20221018
